FAERS Safety Report 4384522-8 (Version None)
Quarter: 2004Q2

REPORT INFORMATION
  Report Type: 
  Country: None (occurrence: None)
  Receive Date: 20040610
  Receipt Date: 20040223
  Transmission Date: 20050107
  Serious: Yes (Hospitalization)
  Sender: FDA-Public Use
  Company Number: F03200400011

PATIENT
  Age: 54 Year
  Sex: Male

DRUGS (9)
  1. ELOXATIN [Suspect]
     Indication: COLON CANCER
     Dosage: 85 MG/M2 Q2W - INTRAVENOUS NOS
     Route: 042
     Dates: start: 20040128, end: 20040128
  2. XELODA [Suspect]
     Indication: COLON CANCER
     Dosage: 800 MG/M2 BID MON-FRI
  3. AVASTIN [Suspect]
     Indication: COLON CANCER
     Dosage: 10 MG/KG Q2W
  4. PROCHLORPERAZNIE MESILATE [Concomitant]
  5. MACROGOL [Concomitant]
  6. ONDANSETRON HCL [Concomitant]
  7. ACETAMINOPHEN [Concomitant]
  8. METRONIDAZOLE [Concomitant]
  9. VITAMINS NOS [Concomitant]

REACTIONS (2)
  - ENTERITIS INFECTIOUS [None]
  - SMALL INTESTINAL OBSTRUCTION [None]
